FAERS Safety Report 20101270 (Version 1)
Quarter: 2021Q4

REPORT INFORMATION
  Report Type: Spontaneous
  Country: US (occurrence: None)
  Receive Date: 20211122
  Receipt Date: 20211122
  Transmission Date: 20220303
  Serious: No
  Sender: FDA-Public Use
  Company Number: None

PATIENT
  Sex: Female

DRUGS (1)
  1. OTEZLA [Suspect]
     Active Substance: APREMILAST
     Dosage: OTHER QUANTITY : 10/20/30MG;?OTHER FREQUENCY : TITRATION DIRECTIO;?
     Route: 048
     Dates: start: 202110, end: 202111

REACTIONS (17)
  - Hypersensitivity [None]
  - Urticaria [None]
  - Nausea [None]
  - Vomiting [None]
  - Diarrhoea [None]
  - Sinus disorder [None]
  - Asthma [None]
  - Pruritus [None]
  - Restlessness [None]
  - Rash [None]
  - Swelling face [None]
  - Swollen tongue [None]
  - Hypotension [None]
  - Mouth swelling [None]
  - Dizziness [None]
  - Pharyngeal swelling [None]
  - Peripheral swelling [None]
